FAERS Safety Report 5684199-5 (Version None)
Quarter: 2008Q1

REPORT INFORMATION
  Report Type: 
  Country: None (occurrence: None)
  Receive Date: 20080327
  Receipt Date: 20080327
  Transmission Date: 20080703
  Serious: Yes (Other)
  Sender: FDA-Public Use
  Company Number: None

PATIENT
  Sex: Male

DRUGS (1)
  1. DOXIL [Suspect]
     Indication: CHEMOTHERAPY
     Dosage: 20MG/M2= 42MG IV
     Route: 042

REACTIONS (6)
  - ABDOMINAL PAIN [None]
  - BLOOD PRESSURE DIASTOLIC INCREASED [None]
  - CHEST DISCOMFORT [None]
  - INFUSION RELATED REACTION [None]
  - PARAESTHESIA [None]
  - REFUSAL OF TREATMENT BY PATIENT [None]
